FAERS Safety Report 22278729 (Version 1)
Quarter: 2023Q2

REPORT INFORMATION
  Report Type: Spontaneous
  Country: US (occurrence: US)
  Receive Date: 20230503
  Receipt Date: 20230503
  Transmission Date: 20230722
  Serious: No
  Sender: FDA-Public Use
  Company Number: US-BAYER-2023A055177

PATIENT
  Age: 79 Year
  Sex: Female

DRUGS (1)
  1. CLIMARA PRO [Suspect]
     Active Substance: ESTRADIOL\LEVONORGESTREL
     Indication: Menopause
     Dosage: 0.045/0.015
     Route: 062
     Dates: end: 20230418

REACTIONS (2)
  - Wrong technique in device usage process [None]
  - Product prescribing issue [None]
